FAERS Safety Report 8606838 (Version 2)
Quarter: 2013Q2

REPORT INFORMATION
  Report Type: Spontaneous
  Country: US (occurrence: US)
  Receive Date: 20120611
  Receipt Date: 20130614
  Transmission Date: 20140414
  Serious: Yes (Hospitalization, Disabling)
  Sender: FDA-Public Use
  Company Number: US-ASTRAZENECA-2012SE35807

PATIENT
  Age: 44 Year
  Sex: Male
  Weight: 89.4 kg

DRUGS (19)
  1. NEXIUM [Suspect]
     Indication: GASTROOESOPHAGEAL REFLUX DISEASE
     Dosage: 20 TO 40 MG, DAILY
     Route: 048
     Dates: start: 2000, end: 2010
  2. NEXIUM [Suspect]
     Indication: BARRETT^S OESOPHAGUS
     Dosage: 20 TO 40 MG, DAILY
     Route: 048
     Dates: start: 2000, end: 2010
  3. NEXIUM [Suspect]
     Indication: GASTROOESOPHAGEAL REFLUX DISEASE
     Route: 048
     Dates: start: 2000, end: 2010
  4. NEXIUM [Suspect]
     Indication: BARRETT^S OESOPHAGUS
     Route: 048
     Dates: start: 2000, end: 2010
  5. NEXIUM [Suspect]
     Indication: GASTROOESOPHAGEAL REFLUX DISEASE
     Route: 048
     Dates: start: 20030818
  6. NEXIUM [Suspect]
     Indication: BARRETT^S OESOPHAGUS
     Route: 048
     Dates: start: 20030818
  7. NEXIUM [Suspect]
     Indication: GASTROOESOPHAGEAL REFLUX DISEASE
     Route: 048
     Dates: start: 20100628
  8. NEXIUM [Suspect]
     Indication: BARRETT^S OESOPHAGUS
     Route: 048
     Dates: start: 20100628
  9. OMEPRAZOLE [Suspect]
     Route: 048
     Dates: start: 20080825
  10. PRILOSEC OTC [Suspect]
     Route: 048
  11. PROVOCET [Concomitant]
  12. ROLAIDS [Concomitant]
     Dates: start: 2000
  13. TUMS [Concomitant]
     Dates: start: 2000
  14. PEPTO [Concomitant]
  15. MYLANTA [Concomitant]
  16. PREVACID [Concomitant]
     Indication: GASTROOESOPHAGEAL REFLUX DISEASE
  17. PREVACID [Concomitant]
     Indication: BARRETT^S OESOPHAGUS
  18. MULTIVITAMIN [Concomitant]
  19. LORTAB [Concomitant]
     Indication: PAIN IN EXTREMITY

REACTIONS (10)
  - Multiple fractures [Unknown]
  - Fibula fracture [Unknown]
  - Limb injury [Unknown]
  - Ankle fracture [Unknown]
  - Nerve injury [Unknown]
  - Tibia fracture [Unknown]
  - Osteoporosis [Unknown]
  - Bone pain [Unknown]
  - Rhinorrhoea [Unknown]
  - Tonsillar disorder [Unknown]
